FAERS Safety Report 5907300-4 (Version None)
Quarter: 2008Q4

REPORT INFORMATION
  Report Type: 
  Country: None (occurrence: None)
  Receive Date: 20081003
  Receipt Date: 20080930
  Transmission Date: 20090506
  Serious: Yes (Death, Hospitalization)
  Sender: FDA-Public Use
  Company Number: PHHO2008DE11721

PATIENT
  Sex: Male
  Weight: 66 kg

DRUGS (3)
  1. GLEEVEC [Suspect]
     Indication: GALLBLADDER CANCER
     Dosage: 600 MG
     Route: 048
     Dates: start: 20080924
  2. FLUOROURACIL [Suspect]
     Indication: GALLBLADDER CANCER
  3. LEUCOVORIN CALCIUM [Suspect]
     Indication: GALLBLADDER CANCER

REACTIONS (2)
  - GASTROINTESTINAL HAEMORRHAGE [None]
  - MELAENA [None]
